FAERS Safety Report 14314491 (Version 7)
Quarter: 2019Q4

REPORT INFORMATION
  Report Type: Spontaneous
  Country: US (occurrence: US)
  Receive Date: 20171221
  Receipt Date: 20191024
  Transmission Date: 20200122
  Serious: Yes (Death, Other)
  Sender: FDA-Public Use
  Company Number: US-ASTRAZENECA-2017SF28663

PATIENT
  Sex: Male
  Weight: 72.6 kg

DRUGS (27)
  1. NEXIUM [Suspect]
     Active Substance: ESOMEPRAZOLE MAGNESIUM
     Indication: GASTROOESOPHAGEAL REFLUX DISEASE
     Route: 048
     Dates: start: 2003, end: 2015
  2. ASPIRIN. [Concomitant]
     Active Substance: ASPIRIN
  3. CALCIUM ACETATE. [Concomitant]
     Active Substance: CALCIUM ACETATE
  4. HYDRALAZINE [Concomitant]
     Active Substance: HYDRALAZINE HYDROCHLORIDE
     Indication: HYPERTENSION
     Route: 065
     Dates: start: 2010, end: 2015
  5. MEVACOR [Concomitant]
     Active Substance: LOVASTATIN
  6. CEPHALEXIN. [Concomitant]
     Active Substance: CEPHALEXIN
  7. MINOXIDIL. [Concomitant]
     Active Substance: MINOXIDIL
  8. FUROSEMIDE. [Concomitant]
     Active Substance: FUROSEMIDE
     Indication: DEHYDRATION
     Route: 065
     Dates: start: 201102, end: 201503
  9. METOPROLOL. [Concomitant]
     Active Substance: METOPROLOL
     Indication: HYPERTENSION
     Route: 065
     Dates: start: 2014
  10. QUININE [Concomitant]
     Active Substance: QUININE
  11. AVAPRO [Concomitant]
     Active Substance: IRBESARTAN
  12. TAMSULOSIN [Concomitant]
     Active Substance: TAMSULOSIN
     Indication: BENIGN PROSTATIC HYPERPLASIA
     Dates: start: 2010, end: 2011
  13. METOLAZONE. [Concomitant]
     Active Substance: METOLAZONE
  14. CARVEDILOL. [Concomitant]
     Active Substance: CARVEDILOL
  15. PRILOSEC [Suspect]
     Active Substance: OMEPRAZOLE MAGNESIUM
     Indication: GASTROOESOPHAGEAL REFLUX DISEASE
     Route: 048
     Dates: start: 199902, end: 200010
  16. LANTUS [Concomitant]
     Active Substance: INSULIN GLARGINE
     Indication: DIABETES MELLITUS
     Route: 065
     Dates: start: 201309, end: 201512
  17. DEPLIN [Concomitant]
     Active Substance: LEVOMEFOLATE CALCIUM
  18. LIPITOR [Concomitant]
     Active Substance: ATORVASTATIN CALCIUM
  19. PRAVASTATIN. [Concomitant]
     Active Substance: PRAVASTATIN
     Indication: BLOOD CHOLESTEROL INCREASED
     Route: 065
     Dates: start: 201108, end: 201501
  20. PREDNISONE. [Concomitant]
     Active Substance: PREDNISONE
     Indication: DYSPNOEA
     Route: 065
     Dates: start: 201406, end: 201507
  21. LISINOPRIL. [Concomitant]
     Active Substance: LISINOPRIL
     Indication: HYPERTENSION
     Route: 065
     Dates: start: 2010, end: 2013
  22. ALBUTEROL. [Concomitant]
     Active Substance: ALBUTEROL
  23. NIASPAN [Concomitant]
     Active Substance: NIACIN
  24. NEXIUM 24HR [Suspect]
     Active Substance: ESOMEPRAZOLE MAGNESIUM
     Indication: GASTROOESOPHAGEAL REFLUX DISEASE
     Route: 048
  25. METOPROLOL. [Concomitant]
     Active Substance: METOPROLOL
     Indication: HYPERTENSION
     Route: 065
     Dates: start: 2010
  26. BETAMETHASONE. [Concomitant]
     Active Substance: BETAMETHASONE
  27. BAYCOL [Concomitant]
     Active Substance: CERIVASTATIN SODIUM

REACTIONS (8)
  - Gangrene [Fatal]
  - End stage renal disease [Recovered/Resolved]
  - Nephrogenic anaemia [Unknown]
  - Renal failure [Unknown]
  - Septic shock [Fatal]
  - Chronic kidney disease [Recovered/Resolved]
  - Acute kidney injury [Unknown]
  - Cardiac arrest [Fatal]
